FAERS Safety Report 7283369-2 (Version None)
Quarter: 2011Q1

REPORT INFORMATION
  Report Type: 
  Country: None (occurrence: None)
  Receive Date: 20110209
  Receipt Date: 20100618
  Transmission Date: 20110831
  Serious: No
  Sender: FDA-Public Use
  Company Number: A0867042A

PATIENT
  Sex: Male

DRUGS (4)
  1. GINSANA [Concomitant]
  2. ZOLOFT [Suspect]
  3. PAXIL [Suspect]
  4. CAFFEINE PILLS [Concomitant]

REACTIONS (8)
  - DRUG INTERACTION [None]
  - DRUG ADMINISTRATION ERROR [None]
  - ANGER [None]
  - MEMORY IMPAIRMENT [None]
  - SLEEP DISORDER [None]
  - DRUG INEFFECTIVE [None]
  - FLUID RETENTION [None]
  - HYPERHIDROSIS [None]
